FAERS Safety Report 12195976 (Version 1)
Quarter: 2016Q1

REPORT INFORMATION
  Report Type: Report from Study
  Country: CA (occurrence: CA)
  Receive Date: 20160321
  Receipt Date: 20160321
  Transmission Date: 20160526
  Serious: Yes (Hospitalization)
  Sender: FDA-Public Use
  Company Number: PHHY2015CA036256

PATIENT
  Age: 63 Year
  Sex: Female

DRUGS (2)
  1. AFINITOR [Suspect]
     Active Substance: EVEROLIMUS
     Indication: NEUROENDOCRINE CARCINOMA
     Dosage: 10 MG, QD
     Route: 048
     Dates: start: 20150316
  2. SANDOSTATIN LAR DEPOT [Suspect]
     Active Substance: OCTREOTIDE ACETATE
     Indication: NEUROENDOCRINE CARCINOMA
     Dosage: 30 MG, ONCE IN A MONTH
     Route: 030
     Dates: start: 20150323, end: 20160216

REACTIONS (5)
  - Body temperature decreased [Recovering/Resolving]
  - Asthenia [Recovering/Resolving]
  - Dehydration [Unknown]
  - Diarrhoea [Unknown]
  - Blood pressure increased [Recovering/Resolving]

NARRATIVE: CASE EVENT DATE: 20150323
